FAERS Safety Report 13748477 (Version 3)
Quarter: 2017Q3

REPORT INFORMATION
  Report Type: Spontaneous
  Country: US (occurrence: US)
  Receive Date: 20170713
  Receipt Date: 20170802
  Transmission Date: 20171127
  Serious: No
  Sender: FDA-Public Use
  Company Number: US-PFIZER INC-2017303298

PATIENT
  Age: 76 Year
  Sex: Male

DRUGS (1)
  1. XELJANZ XR [Suspect]
     Active Substance: TOFACITINIB CITRATE
     Indication: RHEUMATOID ARTHRITIS
     Dosage: 11 MG, UNK

REACTIONS (7)
  - Oropharyngeal pain [Unknown]
  - Nasopharyngitis [Unknown]
  - Insomnia [Unknown]
  - Influenza like illness [Unknown]
  - Drug ineffective [Unknown]
  - Chills [Unknown]
  - Pain [Unknown]
